FAERS Safety Report 9693561 (Version 2)
Quarter: 2013Q4

REPORT INFORMATION
  Report Type: Spontaneous
  Country: CN (occurrence: CN)
  Receive Date: 20131118
  Receipt Date: 20131202
  Transmission Date: 20140711
  Serious: Yes (Hospitalization)
  Sender: FDA-Public Use
  Company Number: CN-GLAXOSMITHKLINE-B0944820A

PATIENT
  Age: 14 Year
  Sex: Female
  Weight: 63 kg

DRUGS (1)
  1. LAMICTAL [Suspect]
     Indication: EPILEPSY
     Route: 048
     Dates: start: 20051116, end: 200601

REACTIONS (11)
  - Drug eruption [Recovered/Resolved]
  - Pyrexia [Recovering/Resolving]
  - Oropharyngeal pain [Recovering/Resolving]
  - Rhinorrhoea [Recovering/Resolving]
  - Rash erythematous [Unknown]
  - Rash pruritic [Unknown]
  - Upper respiratory tract infection [Unknown]
  - Rash [Unknown]
  - Papule [Unknown]
  - Rash maculo-papular [Unknown]
  - White blood cell count decreased [Unknown]
